FAERS Safety Report 6405686-8 (Version None)
Quarter: 2009Q4

REPORT INFORMATION
  Report Type: 
  Country: None (occurrence: None)
  Receive Date: 20091019
  Receipt Date: 20091010
  Transmission Date: 20100525
  Serious: Yes (Other)
  Sender: FDA-Public Use
  Company Number: CN-JNJFOC-20091003894

PATIENT
  Sex: Female

DRUGS (2)
  1. GYNO-DAKTARIN [Suspect]
     Route: 067
  2. GYNO-DAKTARIN [Suspect]
     Indication: VAGINAL INFECTION
     Dosage: QUANTITY SUFFICIENT
     Route: 067

REACTIONS (2)
  - EYELID OEDEMA [None]
  - SWELLING FACE [None]
